FAERS Safety Report 10916141 (Version 3)
Quarter: 2015Q4

REPORT INFORMATION
  Report Type: Spontaneous
  Country: US (occurrence: US)
  Receive Date: 20150316
  Receipt Date: 20151023
  Transmission Date: 20160304
  Serious: Yes (Death, Hospitalization)
  Sender: FDA-Public Use
  Company Number: US-BAUSCH-BL-2015-004267

PATIENT
  Age: 8 Year
  Sex: Female

DRUGS (1)
  1. XENAZINE [Suspect]
     Active Substance: TETRABENAZINE
     Indication: DYSKINESIA
     Dosage: 25 MG ONE TABLET IN THE MORNING, HALF  TABLET AT NOON AND, ONE TABLET AT NIGHT
     Route: 048
     Dates: start: 201502

REACTIONS (4)
  - Hospitalisation [Unknown]
  - Death [Fatal]
  - Dyskinesia [Unknown]
  - Off label use [Unknown]

NARRATIVE: CASE EVENT DATE: 2015
